FAERS Safety Report 6993677-8 (Version None)
Quarter: 2010Q3

REPORT INFORMATION
  Report Type: 
  Country: None (occurrence: None)
  Receive Date: 20100917
  Receipt Date: 20100331
  Transmission Date: 20110219
  Serious: Yes (Hospitalization)
  Sender: FDA-Public Use
  Company Number: US-ASTRAZENECA-2009SE33728

PATIENT
  Age: 251 Month
  Sex: Male

DRUGS (3)
  1. SEROQUEL [Suspect]
     Route: 048
     Dates: start: 20070201
  2. HALDOL [Concomitant]
     Dosage: 25 MG OM Q FOR 28 DAYS
     Dates: start: 20070201
  3. DEPAKOTE ER [Concomitant]
     Dates: start: 20070201

REACTIONS (2)
  - DIABETES MELLITUS INADEQUATE CONTROL [None]
  - TYPE 2 DIABETES MELLITUS [None]
